FAERS Safety Report 17487852 (Version 1)
Quarter: 2020Q1

REPORT INFORMATION
  Report Type: Spontaneous
  Country: CR (occurrence: CR)
  Receive Date: 20200303
  Receipt Date: 20200303
  Transmission Date: 20200409
  Serious: Yes (Other)
  Sender: FDA-Public Use
  Company Number: CR-PFIZER INC-2020093098

PATIENT
  Sex: Female

DRUGS (2)
  1. RELERT [Suspect]
     Active Substance: ELETRIPTAN HYDROBROMIDE
     Indication: MIGRAINE
  2. ENANTYUM [Suspect]
     Active Substance: DEXKETOPROFEN TROMETAMOL

REACTIONS (8)
  - Headache [Unknown]
  - Blood pressure increased [Unknown]
  - Petit mal epilepsy [Unknown]
  - Eye movement disorder [Unknown]
  - Hypokinesia [Unknown]
  - Vision blurred [Unknown]
  - Tremor [Unknown]
  - Feeling cold [Unknown]

NARRATIVE: CASE EVENT DATE: 20200228
